FAERS Safety Report 24062451 (Version 1)
Quarter: 2024Q3

REPORT INFORMATION
  Report Type: Spontaneous
  Country: FR (occurrence: FR)
  Receive Date: 20240708
  Receipt Date: 20240708
  Transmission Date: 20241016
  Serious: Yes (Hospitalization)
  Sender: SANDOZ
  Company Number: FR-002147023-PHHY2018FR068269

PATIENT
  Age: 49 Year
  Sex: Female

DRUGS (2)
  1. METHOTREXATE [Suspect]
     Active Substance: METHOTREXATE
     Indication: Dermatitis atopic
     Dosage: 15 MG, UNK
     Route: 048
     Dates: start: 201712, end: 201802
  2. NEORAL [Suspect]
     Active Substance: CYCLOSPORINE
     Indication: Dermatitis atopic
     Dosage: 5 MG/KG, UNK
     Route: 048
     Dates: start: 201706, end: 201712

REACTIONS (1)
  - Cutaneous lymphoma [Recovering/Resolving]

NARRATIVE: CASE EVENT DATE: 20180501
